FAERS Safety Report 14741331 (Version 4)
Quarter: 2018Q2

REPORT INFORMATION
  Report Type: Spontaneous
  Country: JP (occurrence: JP)
  Receive Date: 20180410
  Receipt Date: 20180521
  Transmission Date: 20180711
  Serious: Yes (Death, Hospitalization, Other)
  Sender: FDA-Public Use
  Company Number: JP-APOTEX-2018AP009974

PATIENT
  Age: 85 Year
  Sex: Female

DRUGS (4)
  1. PAXIL [Suspect]
     Active Substance: PAROXETINE HYDROCHLORIDE
     Indication: DEPRESSION
     Dosage: 10 MG, QD
     Route: 048
  2. PAXIL CR [Suspect]
     Active Substance: PAROXETINE HYDROCHLORIDE
     Dosage: 25 MG, QD
     Route: 048
  3. PAXIL [Suspect]
     Active Substance: PAROXETINE HYDROCHLORIDE
     Dosage: 10 MG, QD
     Route: 048
  4. PAXIL CR [Suspect]
     Active Substance: PAROXETINE HYDROCHLORIDE
     Indication: DEPRESSION
     Dosage: 25 MG, QD
     Route: 048

REACTIONS (3)
  - Enterocolitis [Recovered/Resolved]
  - Pneumonia aspiration [Fatal]
  - Respiratory disorder [Fatal]

NARRATIVE: CASE EVENT DATE: 20180416
